FAERS Safety Report 4486923-6 (Version None)
Quarter: 2004Q3

REPORT INFORMATION
  Report Type: 
  Country: None (occurrence: None)
  Receive Date: 20040921
  Receipt Date: 20030827
  Transmission Date: 20050211
  Serious: Yes (Death)
  Sender: FDA-Public Use
  Company Number: 163-20785-03080765

PATIENT
  Age: 51 Year
  Sex: Male

DRUGS (1)
  1. THALOMID [Suspect]
     Indication: GLIOBLASTOMA
     Dosage: 50-100MG, ORAL
     Route: 048
     Dates: start: 20030921, end: 20030813

REACTIONS (1)
  - DEATH [None]
